FAERS Safety Report 9064222 (Version 1)
Quarter: 2013Q1

REPORT INFORMATION
  Report Type: Report from Study
  Country: US (occurrence: US)
  Receive Date: 20130131
  Receipt Date: 20130131
  Transmission Date: 20140127
  Serious: No
  Sender: FDA-Public Use
  Company Number: US-ABBOTT-12P-163-1022172-00

PATIENT
  Sex: Male
  Weight: 58.57 kg

DRUGS (5)
  1. HUMIRA [Suspect]
     Indication: CROHN^S DISEASE
     Route: 058
     Dates: start: 201210, end: 201210
  2. HUMIRA [Suspect]
     Route: 058
     Dates: start: 201210, end: 201210
  3. HUMIRA [Suspect]
     Route: 058
     Dates: start: 201211
  4. LYRICA [Concomitant]
     Indication: PAIN
     Route: 048
  5. ENTOCORT [Concomitant]
     Indication: CROHN^S DISEASE
     Dosage: 3 TABLETS DAILY
     Route: 048

REACTIONS (4)
  - Weight decreased [Not Recovered/Not Resolved]
  - Abdominal pain [Not Recovered/Not Resolved]
  - Crohn^s disease [Not Recovered/Not Resolved]
  - Headache [Not Recovered/Not Resolved]
